FAERS Safety Report 5302446-6 (Version None)
Quarter: 2007Q2

REPORT INFORMATION
  Report Type: 
  Country: None (occurrence: None)
  Receive Date: 20070413
  Receipt Date: 20070404
  Transmission Date: 20071010
  Serious: Yes (Life-Threatening, Other)
  Sender: FDA-Public Use
  Company Number: GXKR2007GB03195

PATIENT
  Age: 32 Year
  Sex: Female
  Weight: 75 kg

DRUGS (1)
  1. RANITIDINE [Suspect]
     Indication: ANTACID THERAPY
     Dosage: ORAL
     Route: 048
     Dates: start: 20070314

REACTIONS (4)
  - DRUG EXPOSURE DURING PREGNANCY [None]
  - RASH GENERALISED [None]
  - THROAT TIGHTNESS [None]
  - URTICARIA [None]
